FAERS Safety Report 18807315 (Version 1)
Quarter: 2021Q1

REPORT INFORMATION
  Report Type: Spontaneous
  Country: FR (occurrence: FR)
  Receive Date: 20210129
  Receipt Date: 20210129
  Transmission Date: 20210419
  Serious: Yes (Hospitalization, Other)
  Sender: FDA-Public Use
  Company Number: NVSC2020FR295523

PATIENT
  Age: 64 Year
  Sex: Female
  Weight: 69 kg

DRUGS (7)
  1. SODIUM VALPROATE [Concomitant]
     Active Substance: VALPROATE SODIUM
     Indication: PRODUCT USED FOR UNKNOWN INDICATION
     Dosage: UNK
     Route: 065
  2. PANTOPRAZOLE [Concomitant]
     Active Substance: PANTOPRAZOLE
     Indication: PRODUCT USED FOR UNKNOWN INDICATION
     Dosage: UNK
     Route: 065
  3. MACROGOL [Concomitant]
     Active Substance: POLYETHYLENE GLYCOLS
     Indication: PRODUCT USED FOR UNKNOWN INDICATION
     Dosage: UNK
     Route: 065
  4. ALPRAZOLAM. [Concomitant]
     Active Substance: ALPRAZOLAM
     Indication: PRODUCT USED FOR UNKNOWN INDICATION
     Dosage: UNK
     Route: 065
  5. TIAPRIDE HYDROCHLORIDE [Concomitant]
     Active Substance: TIAPRIDE HYDROCHLORIDE
     Indication: PRODUCT USED FOR UNKNOWN INDICATION
     Dosage: UNK
     Route: 065
  6. FUROSEMIDE. [Suspect]
     Active Substance: FUROSEMIDE
     Indication: HYPERNATRAEMIA
     Dosage: UNK
     Route: 065
  7. VORTIOXETINE. [Concomitant]
     Active Substance: VORTIOXETINE
     Indication: PRODUCT USED FOR UNKNOWN INDICATION
     Dosage: UNK
     Route: 065

REACTIONS (12)
  - Hypernatraemia [Recovering/Resolving]
  - Hyperaldosteronism [Unknown]
  - Hypovolaemia [Recovering/Resolving]
  - Hypokalaemia [Recovering/Resolving]
  - Product use in unapproved indication [Unknown]
  - Hyperosmolar state [Recovering/Resolving]
  - Alkalosis [Recovering/Resolving]
  - Blood sodium decreased [Unknown]
  - Hyperchloraemia [Recovering/Resolving]
  - Metabolic alkalosis [Recovering/Resolving]
  - Dehydration [Recovering/Resolving]
  - Acute kidney injury [Recovering/Resolving]
